FAERS Safety Report 8228123-X (Version None)
Quarter: 2012Q1

REPORT INFORMATION
  Report Type: 
  Country: None (occurrence: None)
  Receive Date: 20120322
  Receipt Date: 20111220
  Transmission Date: 20120608
  Serious: No
  Sender: FDA-Public Use
  Company Number: US-BRISTOL-MYERS SQUIBB COMPANY-16306524

PATIENT
  Age: 82 Year
  Sex: Male

DRUGS (2)
  1. MINOCYCLINE HCL [Suspect]
     Indication: NEOPLASM MALIGNANT
  2. ERBITUX [Suspect]
     Indication: NEOPLASM MALIGNANT

REACTIONS (1)
  - ACNE [None]
